FAERS Safety Report 16747946 (Version 2)
Quarter: 2019Q3

REPORT INFORMATION
  Report Type: Report from Study
  Country: BR (occurrence: BR)
  Receive Date: 20190827
  Receipt Date: 20190906
  Transmission Date: 20191005
  Serious: Yes (Other)
  Sender: FDA-Public Use
  Company Number: BR-REGENERON PHARMACEUTICALS, INC.-2019-49631

PATIENT

DRUGS (14)
  1. CEMIPLIMAB [Suspect]
     Active Substance: CEMIPLIMAB
     Indication: PLASMA CELL MYELOMA
     Dosage: 250 MG/KG, QOW
     Route: 065
  2. ISATUXIMAB [Suspect]
     Active Substance: ISATUXIMAB
     Dosage: 10 MG/KG, QW
     Route: 042
     Dates: start: 20190312, end: 20190312
  3. DEXAMETHASONE. [Concomitant]
     Active Substance: DEXAMETHASONE
     Indication: PROPHYLAXIS
     Dosage: 20 MG, 1X
     Route: 042
     Dates: start: 20190814, end: 20190814
  4. RANITIDINE. [Concomitant]
     Active Substance: RANITIDINE
     Indication: PROPHYLAXIS
     Dosage: 50 MG, 1X
     Route: 042
     Dates: start: 20190814, end: 20190814
  5. CEMIPLIMAB [Suspect]
     Active Substance: CEMIPLIMAB
     Dosage: 250 MG/KG, QOW
     Route: 065
     Dates: start: 20190312, end: 20190312
  6. DIPHENHYDRAMINE. [Concomitant]
     Active Substance: DIPHENHYDRAMINE
     Indication: PROPHYLAXIS
     Dosage: 50 MG, 1X
     Route: 042
     Dates: start: 20190814, end: 20190814
  7. PARACETAMOL [Concomitant]
     Active Substance: ACETAMINOPHEN
     Indication: PROPHYLAXIS
     Dosage: 750 MG, QD
     Route: 048
     Dates: start: 20190402
  8. PREGABALIN. [Concomitant]
     Active Substance: PREGABALIN
     Indication: PRODUCT USED FOR UNKNOWN INDICATION
     Dosage: UNK MG, QD
     Route: 048
     Dates: start: 20190705
  9. PARACETAMOL/CODEINE [Concomitant]
     Active Substance: ACETAMINOPHEN\CODEINE PHOSPHATE
     Indication: PRODUCT USED FOR UNKNOWN INDICATION
     Dosage: 1 CAPSULE, QD
     Route: 048
     Dates: start: 20190312
  10. AMOXICILLIN. [Concomitant]
     Active Substance: AMOXICILLIN
     Indication: PRODUCT USED FOR UNKNOWN INDICATION
     Dosage: 875 MG, QD
     Route: 048
     Dates: start: 20190402
  11. ISATUXIMAB [Suspect]
     Active Substance: ISATUXIMAB
     Indication: PLASMA CELL MYELOMA
     Dosage: 10 MG/KG, QW
     Route: 042
     Dates: start: 20190814, end: 20190814
  12. PARACETAMOL [Concomitant]
     Active Substance: ACETAMINOPHEN
     Indication: DRUG THERAPY
     Dosage: 750 MG, 1X
     Route: 048
     Dates: start: 20190814, end: 20190814
  13. PAMIDRONATE [Concomitant]
     Active Substance: PAMIDRONATE DISODIUM
     Indication: PROPHYLAXIS
     Dosage: 90 MG/L, QD
     Route: 042
     Dates: start: 2016
  14. AMITRIPTYLINE [Concomitant]
     Active Substance: AMITRIPTYLINE
     Indication: PRODUCT USED FOR UNKNOWN INDICATION
     Dosage: 25 MG, QD
     Route: 048
     Dates: start: 20190326

REACTIONS (1)
  - Acute abdomen [Recovered/Resolved]

NARRATIVE: CASE EVENT DATE: 20190820
